FAERS Safety Report 10266896 (Version 1)
Quarter: 2014Q2

REPORT INFORMATION
  Report Type: Spontaneous
  Country: US (occurrence: None)
  Receive Date: 20140625
  Receipt Date: 20140625
  Transmission Date: 20141212
  Serious: No
  Sender: FDA-Public Use
  Company Number: None

PATIENT
  Age: 71 Year
  Sex: Male
  Weight: 72.58 kg

DRUGS (1)
  1. XARELTO [Suspect]
     Indication: THROMBOSIS
     Dates: start: 20140319, end: 20140325

REACTIONS (3)
  - Blood urine present [None]
  - Epistaxis [None]
  - Eye haemorrhage [None]
